FAERS Safety Report 8592505-7 (Version None)
Quarter: 2012Q3

REPORT INFORMATION
  Report Type: 
  Country: None (occurrence: None)
  Receive Date: 20120814
  Receipt Date: 20120807
  Transmission Date: 20120928
  Serious: Yes (Other)
  Sender: FDA-Public Use
  Company Number: PHHY2012BR069672

PATIENT
  Sex: Female
  Weight: 60 kg

DRUGS (6)
  1. RITALIN [Suspect]
     Indication: DEPRESSION
     Dosage: 1 DF, DAILY
     Route: 048
  2. GLUCOSAMINE SULFATE [Concomitant]
  3. ALPRAZOLAM [Concomitant]
  4. CLOGRETINA SULPHATE [Concomitant]
  5. BUPROPION HCL [Concomitant]
  6. CITALOPRAM [Concomitant]

REACTIONS (2)
  - ARTHRITIS [None]
  - OSTEOARTHRITIS [None]
